FAERS Safety Report 16826656 (Version 2)
Quarter: 2019Q3

REPORT INFORMATION
  Report Type: Report from Study
  Country: RO (occurrence: RO)
  Receive Date: 20190919
  Receipt Date: 20190926
  Transmission Date: 20191005
  Serious: Yes (Death, Hospitalization, Other)
  Sender: FDA-Public Use
  Company Number: RO-GILEAD-2019-0429171

PATIENT
  Age: 62 Year
  Sex: Male

DRUGS (11)
  1. PENICILLIN B [Concomitant]
     Active Substance: PHENETICILLIN
  2. RIFAXIMIN. [Concomitant]
     Active Substance: RIFAXIMIN
  3. NORMIX [Concomitant]
     Active Substance: RIFAXIMIN
  4. LEDIPASVIR/SOFOSBUVIR [Suspect]
     Active Substance: LEDIPASVIR\SOFOSBUVIR
     Indication: HEPATIC CIRRHOSIS
  5. SIDERAL FORTE [Concomitant]
     Active Substance: ASCORBIC ACID\FERRIC PYROPHOSPHATE
  6. URSODEOXYCHOLIC ACID [Concomitant]
     Active Substance: URSODIOL
  7. LAGOSA [Concomitant]
     Active Substance: DIETARY SUPPLEMENT\HERBALS\MILK THISTLE
  8. URSOFALK [Concomitant]
     Active Substance: URSODIOL
  9. LEDIPASVIR/SOFOSBUVIR [Suspect]
     Active Substance: LEDIPASVIR\SOFOSBUVIR
     Indication: HEPATITIS C
     Dosage: 1 DOSAGE FORM, QD
     Route: 048
     Dates: start: 20190514
  10. DUPHALAC [Concomitant]
     Active Substance: LACTULOSE
  11. ZINNAT [CEFUROXIME AXETIL] [Concomitant]
     Active Substance: CEFUROXIME

REACTIONS (25)
  - Urinary tract infection bacterial [Unknown]
  - Lymphoedema [Unknown]
  - Mastitis [Unknown]
  - Hypokalaemia [Unknown]
  - Peau d^orange [Unknown]
  - Spinal compression fracture [Unknown]
  - Jaundice [Unknown]
  - Ascites [Unknown]
  - Cholelithiasis [Unknown]
  - Osteoporosis [Unknown]
  - Bacterial infection [Unknown]
  - Iron deficiency anaemia [Unknown]
  - Chronic hepatic failure [Unknown]
  - Anaemia [Unknown]
  - Localised oedema [Unknown]
  - Death [Fatal]
  - Thrombocytopenia [Unknown]
  - Degenerative bone disease [Unknown]
  - Portal hypertension [Unknown]
  - Cholestasis [Unknown]
  - Biliary tract disorder [Unknown]
  - Cell death [Unknown]
  - Lymphadenopathy [Unknown]
  - Pleurisy [Unknown]
  - Splenomegaly [Unknown]
